FAERS Safety Report 23695063 (Version 1)
Quarter: 2024Q2

REPORT INFORMATION
  Report Type: Spontaneous
  Country: US (occurrence: US)
  Receive Date: 20240402
  Receipt Date: 20240402
  Transmission Date: 20240716
  Serious: No
  Sender: FDA-Public Use
  Company Number: US-PADAGIS-2024PAD00421

PATIENT

DRUGS (3)
  1. TRETINOIN [Suspect]
     Active Substance: TRETINOIN
     Indication: Heavy exposure to ultraviolet light
     Dosage: UNK, UNK
     Route: 065
  2. TRETINOIN [Suspect]
     Active Substance: TRETINOIN
     Indication: Skin disorder
  3. TRETINOIN [Suspect]
     Active Substance: TRETINOIN
     Indication: Hyperkeratosis

REACTIONS (5)
  - Skin tightness [Unknown]
  - Dry skin [Unknown]
  - Adverse event [Unknown]
  - Product use in unapproved indication [Unknown]
  - Product physical consistency issue [Unknown]
